FAERS Safety Report 12601339 (Version 1)
Quarter: 2016Q3

REPORT INFORMATION
  Report Type: Spontaneous
  Country: US (occurrence: None)
  Receive Date: 20160727
  Receipt Date: 20160727
  Transmission Date: 20161109
  Serious: Yes (Death)
  Sender: FDA-Public Use
  Company Number: None

PATIENT
  Age: 58 Year
  Sex: Male

DRUGS (4)
  1. NEUPOGEN [Suspect]
     Active Substance: FILGRASTIM
     Indication: PROSTATE CANCER
     Dosage: 2880 UG AFTER EACH CHE SUBQ
     Route: 058
     Dates: start: 20160415, end: 20160704
  2. NEUPOGEN [Suspect]
     Active Substance: FILGRASTIM
     Indication: METASTASES TO BONE
     Dosage: 2880 UG AFTER EACH CHE SUBQ
     Route: 058
     Dates: start: 20160415, end: 20160704
  3. XGEVA [Suspect]
     Active Substance: DENOSUMAB
     Indication: METASTASES TO BONE
     Route: 058
     Dates: start: 20160527, end: 20160701
  4. XGEVA [Suspect]
     Active Substance: DENOSUMAB
     Indication: PROSTATE CANCER
     Route: 058
     Dates: start: 20160527, end: 20160701

REACTIONS (1)
  - Death [None]

NARRATIVE: CASE EVENT DATE: 20160719
